FAERS Safety Report 13895952 (Version 1)
Quarter: 2017Q3

REPORT INFORMATION
  Report Type: Spontaneous
  Country: US (occurrence: None)
  Receive Date: 20170816
  Receipt Date: 20170816
  Transmission Date: 20171127
  Serious: No
  Sender: FDA-Public Use
  Company Number: None

PATIENT
  Age: 52 Year
  Sex: Male

DRUGS (7)
  1. IBUPROFEN. [Concomitant]
     Active Substance: IBUPROFEN
  2. LATANOPROST. [Concomitant]
     Active Substance: LATANOPROST
  3. ASPIRIN. [Concomitant]
     Active Substance: ASPIRIN
  4. GLIPIZIDE. [Concomitant]
     Active Substance: GLIPIZIDE
  5. METFORMIN [Concomitant]
     Active Substance: METFORMIN HYDROCHLORIDE
  6. LOVASTATIN. [Concomitant]
     Active Substance: LOVASTATIN
  7. PROPARACAINE [Suspect]
     Active Substance: PROPARACAINE
     Indication: PREMEDICATION
     Dosage: 1 GTT ONCE OPHTH
     Route: 047
     Dates: start: 20170523, end: 20170523

REACTIONS (5)
  - Eye pain [None]
  - Procedural pain [None]
  - Corneal disorder [None]
  - Wrong technique in product usage process [None]
  - Wrong technique in device usage process [None]

NARRATIVE: CASE EVENT DATE: 20170523
